FAERS Safety Report 9374645 (Version 1)
Quarter: 2013Q2

REPORT INFORMATION
  Report Type: Spontaneous
  Country: US (occurrence: US)
  Receive Date: 20130628
  Receipt Date: 20130628
  Transmission Date: 20140414
  Serious: Yes (Other)
  Sender: FDA-Public Use
  Company Number: US-PFIZER INC-2013190440

PATIENT
  Age: 62 Year
  Sex: Male
  Weight: 104.31 kg

DRUGS (6)
  1. LIPITOR [Suspect]
     Indication: BLOOD CHOLESTEROL INCREASED
     Dosage: 20 MG, 1X/DAY
     Route: 048
     Dates: start: 2000
  2. DIGOXIN [Concomitant]
     Dosage: UNK
  3. PACERONE [Concomitant]
     Dosage: UNK
  4. METOPROLOL [Concomitant]
     Dosage: UNK
  5. DIOVAN [Concomitant]
     Dosage: UNK
  6. BUMETANIDE [Concomitant]
     Dosage: UNK

REACTIONS (1)
  - Renal impairment [Unknown]
